FAERS Safety Report 6162652-8 (Version None)
Quarter: 2009Q2

REPORT INFORMATION
  Report Type: 
  Country: None (occurrence: None)
  Receive Date: 20090421
  Receipt Date: 20080819
  Transmission Date: 20091009
  Serious: Yes (Hospitalization)
  Sender: FDA-Public Use
  Company Number: US-ASTRAZENECA-2008UW16493

PATIENT
  Age: 20430 Day
  Sex: Male

DRUGS (5)
  1. CASODEX [Suspect]
     Indication: PROSTATE CANCER
     Route: 048
     Dates: start: 20080128, end: 20080428
  2. IPILIMUMAB [Suspect]
     Indication: PROSTATE CANCER
     Dosage: 3 MG/KILOGRAM/PER DAY
     Route: 042
     Dates: start: 20080204, end: 20080204
  3. LUPRON [Suspect]
     Indication: PROSTATE CANCER
     Route: 030
     Dates: start: 20080128
  4. MULTI-VITAMINS [Concomitant]
  5. CALCIUM + VITAMIN D [Concomitant]

REACTIONS (1)
  - DIARRHOEA [None]
